FAERS Safety Report 6519943-8 (Version None)
Quarter: 2009Q4

REPORT INFORMATION
  Report Type: 
  Country: None (occurrence: None)
  Receive Date: 20091229
  Receipt Date: 20091221
  Transmission Date: 20100525
  Serious: Yes (Hospitalization)
  Sender: FDA-Public Use
  Company Number: US-BIOGENIDEC-2009BI041543

PATIENT
  Age: 60 Year
  Sex: Female
  Weight: 84 kg

DRUGS (2)
  1. AVONEX [Suspect]
     Indication: MULTIPLE SCLEROSIS
     Route: 030
     Dates: start: 20000901, end: 20030101
  2. AVONEX [Suspect]
     Route: 030
     Dates: start: 20030101

REACTIONS (10)
  - ARTHROPATHY [None]
  - BACK PAIN [None]
  - FACE INJURY [None]
  - FALL [None]
  - HEAD INJURY [None]
  - INCONTINENCE [None]
  - INSOMNIA [None]
  - MEMORY IMPAIRMENT [None]
  - PAIN IN EXTREMITY [None]
  - SWELLING FACE [None]
